FAERS Safety Report 6300237-0 (Version None)
Quarter: 2009Q3

REPORT INFORMATION
  Report Type: 
  Country: None (occurrence: None)
  Receive Date: 20090803
  Receipt Date: 20090724
  Transmission Date: 20100115
  Serious: Yes (Life-Threatening)
  Sender: FDA-Public Use
  Company Number: 2009AL004966

PATIENT
  Age: 25 Year
  Sex: Female

DRUGS (1)
  1. METOCLOPRAMIDE [Suspect]
     Dosage: 10 MG; IV
     Route: 042
     Dates: start: 20090628, end: 20090628

REACTIONS (1)
  - CARDIAC ARREST [None]
